FAERS Safety Report 9983044 (Version 1)
Quarter: 2014Q1

REPORT INFORMATION
  Report Type: Report from Study
  Country: US (occurrence: US)
  Receive Date: 20140307
  Receipt Date: 20140307
  Transmission Date: 20141002
  Serious: No
  Sender: FDA-Public Use
  Company Number: US-ABBVIE-13P-163-1176979-00

PATIENT
  Sex: Female

DRUGS (5)
  1. HUMIRA [Suspect]
     Indication: CROHN^S DISEASE
     Dates: start: 20130923
  2. IMURAN [Concomitant]
     Indication: CROHN^S DISEASE
  3. HYOSCYAMINE [Concomitant]
     Indication: ABDOMINAL PAIN UPPER
     Dosage: AS NEEDED
  4. LOPERAMIDE [Concomitant]
     Indication: DIARRHOEA
  5. DICYCLOMINE [Concomitant]
     Indication: ABDOMINAL PAIN UPPER

REACTIONS (3)
  - Night sweats [Not Recovered/Not Resolved]
  - Pyrexia [Not Recovered/Not Resolved]
  - Crohn^s disease [Not Recovered/Not Resolved]
